FAERS Safety Report 7891449-3 (Version None)
Quarter: 2011Q4

REPORT INFORMATION
  Report Type: 
  Country: None (occurrence: None)
  Receive Date: 20111103
  Receipt Date: 20110803
  Transmission Date: 20120403
  Serious: No
  Sender: FDA-Public Use
  Company Number: US-AMGEN-USASP2011039551

PATIENT
  Age: 55 Year
  Sex: Female

DRUGS (1)
  1. ENBREL [Suspect]
     Indication: RHEUMATOID ARTHRITIS
     Dosage: 50 MG, EVERY 9 DAYS
     Dates: start: 20100710

REACTIONS (6)
  - PNEUMONIA [None]
  - COUGH [None]
  - PYREXIA [None]
  - RHEUMATOID ARTHRITIS [None]
  - DYSPNOEA [None]
  - PAIN [None]
